FAERS Safety Report 8309103-2 (Version None)
Quarter: 2012Q2

REPORT INFORMATION
  Report Type: 
  Country: None (occurrence: None)
  Receive Date: 20120424
  Receipt Date: 20120418
  Transmission Date: 20120825
  Serious: Yes (Other)
  Sender: FDA-Public Use
  Company Number: BR-PFIZER INC-2012097542

PATIENT
  Age: 71 Year
  Sex: Male

DRUGS (14)
  1. LYRICA [Suspect]
     Indication: PAIN
     Dosage: 75 MG, 2X/DAY, EVERY 12 HOURS
     Route: 048
     Dates: start: 20100919
  2. LOSARTAN [Concomitant]
     Indication: HYPERTENSION
  3. TRAMADOL HYDROCHLORIDE [Concomitant]
     Dosage: UNK
     Dates: start: 20110101
  4. VONAL [Concomitant]
     Indication: NAUSEA
     Dosage: UNK
     Dates: start: 20070418
  5. LERCANIDIPINE [Concomitant]
     Indication: PAIN
     Dosage: UNK
     Dates: start: 20070418
  6. NAUSEDRON [Concomitant]
     Indication: NAUSEA
     Dosage: UNK
     Dates: start: 20070418
  7. CYMBALTA [Concomitant]
     Indication: PAIN
     Dosage: UNK
     Dates: start: 20070418
  8. LOSARTAN [Concomitant]
     Indication: CARDIAC DISORDER
     Dosage: UNK
     Dates: start: 20070418
  9. OMEPRAZOLE [Concomitant]
     Indication: GASTRITIS
  10. BROMOPRIDE [Concomitant]
     Indication: NAUSEA
     Dosage: UNK
     Dates: start: 20070418
  11. ALLOPURINOL [Concomitant]
     Dosage: UNK
     Dates: start: 20070418
  12. CARVEDILOL [Concomitant]
     Indication: CARDIAC DISORDER
     Dosage: UNK
     Dates: start: 20070418
  13. ULTRASET [Concomitant]
     Indication: PAIN
     Dosage: UNK
     Dates: start: 20090418
  14. OMEPRAZOLE [Concomitant]
     Indication: GASTRIC DISORDER
     Dosage: UNK
     Dates: start: 20070418

REACTIONS (2)
  - TUMOUR INVASION [None]
  - DRUG INEFFECTIVE [None]
